FAERS Safety Report 7263969-6 (Version None)
Quarter: 2011Q1

REPORT INFORMATION
  Report Type: 
  Country: None (occurrence: None)
  Receive Date: 20110130
  Receipt Date: 20101101
  Transmission Date: 20110831
  Serious: No
  Sender: FDA-Public Use
  Company Number: US-ABBOTT-10P-163-0682656-00

PATIENT
  Age: 33 Year
  Sex: Female

DRUGS (20)
  1. IRON [Concomitant]
     Indication: PRODUCT USED FOR UNKNOWN INDICATION
     Route: 048
  2. XANAX [Concomitant]
     Indication: ANXIETY
     Dosage: EVERY FOUR HOURS, AS NEEDED
     Route: 048
  3. IMITREX [Concomitant]
     Indication: MIGRAINE
     Route: 048
  4. AMBIEN [Concomitant]
     Indication: INSOMNIA
     Dosage: DAILY AT BEDTIME
     Route: 048
  5. FOLIC ACID [Concomitant]
     Indication: PRODUCT USED FOR UNKNOWN INDICATION
     Route: 048
  6. ZOFRAN [Concomitant]
     Indication: NAUSEA
     Dosage: EVERY 8 HOURS, AS NEEDED
     Route: 048
  7. CALCIUM [Concomitant]
     Indication: PRODUCT USED FOR UNKNOWN INDICATION
     Route: 048
  8. MULTI-VITAMIN [Concomitant]
     Indication: PRODUCT USED FOR UNKNOWN INDICATION
     Route: 048
  9. OXYCODONE [Concomitant]
     Indication: PAIN
     Dosage: 2 IN 1 D, AS NEEDED
     Route: 048
  10. WELLBUTRIN [Concomitant]
     Indication: SMOKING CESSATION THERAPY
  11. VITAMIN D [Concomitant]
     Indication: PRODUCT USED FOR UNKNOWN INDICATION
     Route: 048
  12. LIALDA [Concomitant]
     Indication: PRODUCT USED FOR UNKNOWN INDICATION
  13. HUMIRA [Suspect]
     Indication: CROHN'S DISEASE
     Dates: start: 20100901
  14. ACYCLOVIR [Concomitant]
     Indication: GENITAL HERPES
     Route: 048
  15. NEUROPAX [Concomitant]
     Indication: RESTLESS LEGS SYNDROME
     Dosage: DAILY EVERY NIGHT
     Route: 048
  16. MIRALAX [Concomitant]
     Indication: CONSTIPATION
     Route: 048
  17. ZOVIRAX [Concomitant]
     Indication: GENITAL HERPES
  18. VITAMIN B-12 [Concomitant]
     Indication: PRODUCT USED FOR UNKNOWN INDICATION
     Route: 048
  19. WELLBUTRIN [Concomitant]
     Indication: DEPRESSION
     Route: 048
  20. NEXIUM [Concomitant]
     Indication: GASTROOESOPHAGEAL REFLUX DISEASE
     Route: 048

REACTIONS (5)
  - OROPHARYNGEAL PAIN [None]
  - NAUSEA [None]
  - PARANASAL SINUS HYPERSECRETION [None]
  - FEELING OF BODY TEMPERATURE CHANGE [None]
  - PAIN [None]
